FAERS Safety Report 7586785-4 (Version None)
Quarter: 2011Q2

REPORT INFORMATION
  Report Type: 
  Country: None (occurrence: None)
  Receive Date: 20110627
  Receipt Date: 20110617
  Transmission Date: 20111010
  Serious: Yes (Hospitalization, Other)
  Sender: FDA-Public Use
  Company Number: 2009SP028435

PATIENT
  Age: 25 Year
  Sex: Female
  Weight: 136.0791 kg

DRUGS (26)
  1. ZITHROMAX [Concomitant]
  2. TOPAMAX [Concomitant]
  3. EFFEXOR XR [Concomitant]
  4. VALIUM [Concomitant]
  5. ELAVIL [Concomitant]
  6. HYDROCODONE BITARTRATE AND ACETAMINOPHEN [Concomitant]
  7. RABEPRAZOLE SODIUM [Concomitant]
  8. LASIX [Concomitant]
  9. NULYTELY [Concomitant]
  10. ACIPHEX [Concomitant]
  11. SEROQUEL [Concomitant]
  12. NUVARING [Suspect]
     Indication: CONTRACEPTION
     Dosage: VAG
     Route: 067
     Dates: start: 20050907, end: 20070315
  13. DIFLUCAN [Concomitant]
  14. FLUOCINOLONE ACETONIDE [Concomitant]
  15. FLAGYL [Concomitant]
  16. HYDROCODONE BITARTRATE AND ACETAMINOPHEN [Concomitant]
  17. CELEXA [Concomitant]
  18. XANAX [Concomitant]
  19. TRAZODONE HCL [Concomitant]
  20. METHYLPREDNISOLONE [Concomitant]
  21. TEMAZEPAM [Concomitant]
  22. LUNESTA [Concomitant]
  23. GEODON [Concomitant]
  24. CLONAZEPAM [Concomitant]
  25. OLUX [Concomitant]
  26. WELLBUTRIN [Concomitant]

REACTIONS (42)
  - CALCULUS URETHRAL [None]
  - ROAD TRAFFIC ACCIDENT [None]
  - CELLULITIS [None]
  - PAINFUL RESPIRATION [None]
  - MELAENA [None]
  - DYSPNOEA [None]
  - OEDEMA PERIPHERAL [None]
  - DRUG ABUSE [None]
  - SELF ESTEEM DECREASED [None]
  - APPARENT DEATH [None]
  - BORDERLINE PERSONALITY DISORDER [None]
  - ENDOMETRIOSIS [None]
  - INTERNATIONAL NORMALISED RATIO DECREASED [None]
  - ANKLE OPERATION [None]
  - MITRAL VALVE INCOMPETENCE [None]
  - LACERATION [None]
  - HYPOAESTHESIA [None]
  - GASTROENTERITIS [None]
  - PAIN IN EXTREMITY [None]
  - DRUG INEFFECTIVE [None]
  - LOSS OF CONSCIOUSNESS [None]
  - ANGER [None]
  - ARTHRALGIA [None]
  - BIPOLAR II DISORDER [None]
  - PHARYNGITIS STREPTOCOCCAL [None]
  - INTERNATIONAL NORMALISED RATIO INCREASED [None]
  - JOINT SPRAIN [None]
  - SYSTEMIC LUPUS ERYTHEMATOSUS [None]
  - DEEP VEIN THROMBOSIS [None]
  - CHEST DISCOMFORT [None]
  - DRUG RESISTANCE [None]
  - ALCOHOL ABUSE [None]
  - DYSTHYMIC DISORDER [None]
  - CONSTIPATION [None]
  - VAGINAL DISCHARGE [None]
  - RECTAL HAEMORRHAGE [None]
  - WEIGHT DECREASED [None]
  - JOINT SWELLING [None]
  - NERVE COMPRESSION [None]
  - MUSCLE SPASMS [None]
  - PANIC DISORDER [None]
  - SLEEP APNOEA SYNDROME [None]
